FAERS Safety Report 13768477 (Version 1)
Quarter: 2017Q3

REPORT INFORMATION
  Report Type: Spontaneous
  Country: US (occurrence: US)
  Receive Date: 20170719
  Receipt Date: 20170719
  Transmission Date: 20171127
  Serious: Yes (Other)
  Sender: FDA-Public Use
  Company Number: None

PATIENT
  Age: 27 Year
  Sex: Male

DRUGS (1)
  1. ARIPIPRAZOLE. [Suspect]
     Active Substance: ARIPIPRAZOLE
     Indication: AFFECTIVE DISORDER
     Dosage: ?          OTHER DOSE:MG;?
     Route: 048
     Dates: start: 20150601, end: 20150616

REACTIONS (2)
  - Agitation [None]
  - Poor quality sleep [None]

NARRATIVE: CASE EVENT DATE: 20150616
